FAERS Safety Report 20370601 (Version 1)
Quarter: 2022Q1

REPORT INFORMATION
  Report Type: Report from Study
  Country: US (occurrence: US)
  Receive Date: 20220124
  Receipt Date: 20220124
  Transmission Date: 20220423
  Serious: Yes (Other)
  Sender: FDA-Public Use
  Company Number: US-PFIZER INC-202101788595

PATIENT
  Age: 68 Year
  Sex: Male

DRUGS (2)
  1. INLYTA [Suspect]
     Active Substance: AXITINIB
     Dosage: 1 MG
     Dates: start: 20211203
  2. AMLODIPINE [Concomitant]
     Active Substance: AMLODIPINE BESYLATE
     Dosage: UNK

REACTIONS (8)
  - Pneumonia [Unknown]
  - Infection [Unknown]
  - Diarrhoea [Unknown]
  - Hypertension [Unknown]
  - Cold sweat [Unknown]
  - Rhinorrhoea [Unknown]
  - Decreased appetite [Unknown]
  - Weight decreased [Unknown]
